FAERS Safety Report 6115408-6 (Version None)
Quarter: 2009Q1

REPORT INFORMATION
  Report Type: 
  Country: None (occurrence: None)
  Receive Date: 20090313
  Receipt Date: 20090305
  Transmission Date: 20090719
  Serious: Yes (Death, Other)
  Sender: FDA-Public Use
  Company Number: US-ALLERGAN-0808501US

PATIENT
  Sex: Male
  Weight: 74.376 kg

DRUGS (18)
  1. BOTOX [Suspect]
     Indication: SALIVARY HYPERSECRETION
     Dosage: UNK, SINGLE
     Dates: start: 20080205, end: 20080205
  2. BOTOX [Suspect]
     Dosage: 100 UNITS, SINGLE
     Dates: start: 20080304, end: 20080304
  3. COLACE [Concomitant]
     Indication: CONSTIPATION
     Dosage: 100 MG, 2 TABS PRN
     Route: 048
  4. FLONASE [Concomitant]
     Dosage: 1 SPRAY EACH NOSTRIL, BID
     Route: 055
  5. ASCORBIC ACID [Concomitant]
     Indication: SUPPLEMENTATION THERAPY
     Dosage: 500 MG, QD
     Route: 048
  6. ASPIRIN [Concomitant]
     Indication: CEREBROVASCULAR ACCIDENT PROPHYLAXIS
     Dosage: 325 MG, QD
     Route: 048
  7. MULTI-VITAMIN [Concomitant]
     Indication: SUPPLEMENTATION THERAPY
     Dosage: 1 TABLET, QD
     Route: 048
  8. PREVACID [Concomitant]
     Indication: GASTROOESOPHAGEAL REFLUX DISEASE
     Dosage: 30 MG, QD
     Route: 048
  9. FISH OIL [Concomitant]
     Indication: SUPPLEMENTATION THERAPY
     Dosage: 1 CAPSULE, BID
     Route: 048
  10. LIPITOR [Concomitant]
     Indication: BLOOD CHOLESTEROL INCREASED
     Dosage: 20 MG, QHS
     Route: 048
  11. DIOVAN [Concomitant]
     Indication: HYPERTENSION
     Dosage: 320 MG, QD
     Route: 048
  12. TOPROL-XL [Concomitant]
     Indication: HYPERTENSION
     Dosage: 25 MG, QPM
     Route: 048
  13. TOPROL-XL [Concomitant]
     Dosage: 75 MG, QPM
     Route: 048
     Dates: start: 20080116
  14. TOPROL-XL [Concomitant]
     Dosage: 100 MG, QHS
     Route: 048
     Dates: start: 20080204
  15. TOPROL-XL [Concomitant]
     Dosage: 200 MG, QHS
     Route: 048
  16. SINEMET [Concomitant]
     Indication: DYSKINESIA
     Dosage: 2 TABLETS, TID
     Route: 048
  17. LEVSIN SL [Concomitant]
     Indication: SECRETION DISCHARGE
     Dosage: 0.125 MG, Q12H
     Route: 060
  18. ALLOPURINOL [Concomitant]
     Dosage: 300 MG, QD
     Route: 048

REACTIONS (3)
  - DYSPHAGIA [None]
  - DYSPHONIA [None]
  - PNEUMONIA ASPIRATION [None]
